FAERS Safety Report 10484054 (Version 1)
Quarter: 2014Q3

REPORT INFORMATION
  Report Type: Spontaneous
  Country: US (occurrence: US)
  Receive Date: 20140930
  Receipt Date: 20140930
  Transmission Date: 20150326
  Serious: Yes (Other)
  Sender: FDA-Public Use
  Company Number: US-PFIZER INC-2014268104

PATIENT
  Age: 67 Year
  Sex: Male
  Weight: 86.17 kg

DRUGS (2)
  1. CELEBREX [Suspect]
     Active Substance: CELECOXIB
     Indication: BACK PAIN
     Dosage: 40 MG, 2X/DAY
     Dates: start: 1999
  2. CELEBREX [Suspect]
     Active Substance: CELECOXIB
     Dosage: 80 MG, 1X/DAY
     Dates: end: 2002

REACTIONS (6)
  - Convulsion [Not Recovered/Not Resolved]
  - Dyspnoea [Not Recovered/Not Resolved]
  - Vein disorder [Not Recovered/Not Resolved]
  - Cardiac disorder [Not Recovered/Not Resolved]
  - Cerebrovascular accident [Unknown]
  - Arterial disorder [Not Recovered/Not Resolved]

NARRATIVE: CASE EVENT DATE: 2006
